FAERS Safety Report 14074405 (Version 1)
Quarter: 2017Q4

REPORT INFORMATION
  Report Type: Report from Study
  Country: US (occurrence: US)
  Receive Date: 20171010
  Receipt Date: 20171010
  Transmission Date: 20180321
  Serious: Yes (Other)
  Sender: FDA-Public Use
  Company Number: US-MALLINCKRODT-T201701384

PATIENT
  Age: 68 Year
  Sex: Female

DRUGS (4)
  1. REPOSITORY CORTICOTROPIN INJECTION [Suspect]
     Active Substance: CORTICOTROPIN
     Dosage: 40 UNITS / .5 ML, 2 TIMES PER WEEK, TUESDAY/FRIDAY
     Route: 058
     Dates: start: 20170228
  2. REPOSITORY CORTICOTROPIN INJECTION [Suspect]
     Active Substance: CORTICOTROPIN
     Dosage: 40 UNITS / .5 ML, 2 TIMES PER WEEK, WEDNESDAY, SATURDAY
     Route: 058
     Dates: start: 20170228
  3. REPOSITORY CORTICOTROPIN INJECTION [Suspect]
     Active Substance: CORTICOTROPIN
     Indication: SARCOIDOSIS
     Dosage: 80 UNITS / 1 ML, 2 TIMES PER WEEK, TUESDAY/FRIDAY
     Route: 058
     Dates: start: 20170228
  4. REPOSITORY CORTICOTROPIN INJECTION [Suspect]
     Active Substance: CORTICOTROPIN
     Dosage: 40 UNITS / .5 ML, 2 TIMES PER WEEK, WEDNESDAY, SATURDAY
     Route: 058

REACTIONS (8)
  - Gastroenteritis viral [Recovered/Resolved]
  - Headache [Recovering/Resolving]
  - Vomiting [Not Recovered/Not Resolved]
  - Drug dose omission [Not Recovered/Not Resolved]
  - Constipation [Not Recovered/Not Resolved]
  - Product storage error [Unknown]
  - Cardiac disorder [Not Recovered/Not Resolved]
  - Malaise [Not Recovered/Not Resolved]

NARRATIVE: CASE EVENT DATE: 20170326
